FAERS Safety Report 7009521-9 (Version None)
Quarter: 2010Q3

REPORT INFORMATION
  Report Type: 
  Country: None (occurrence: None)
  Receive Date: 20100923
  Receipt Date: 20100914
  Transmission Date: 20110219
  Serious: Yes (Hospitalization)
  Sender: FDA-Public Use
  Company Number: PHHY2010US61518

PATIENT
  Sex: Female
  Weight: 48.64 kg

DRUGS (2)
  1. EXJADE [Suspect]
     Indication: MYELODYSPLASTIC SYNDROME
     Dosage: 1000 MG/DAY
     Route: 048
     Dates: start: 20100612
  2. EXJADE [Suspect]
     Dosage: 1000 MG/DAY
     Route: 048

REACTIONS (1)
  - PULMONARY OEDEMA [None]
